FAERS Safety Report 12791274 (Version 1)
Quarter: 2016Q3

REPORT INFORMATION
  Report Type: Spontaneous
  Country: PT (occurrence: PT)
  Receive Date: 20160929
  Receipt Date: 20160929
  Transmission Date: 20161109
  Serious: Yes (Hospitalization)
  Sender: FDA-Public Use
  Company Number: PHHY2016PT132048

PATIENT
  Age: 76 Year
  Sex: Female

DRUGS (1)
  1. AMOXICILLIN + CLAVULANATE POTASSIUM [Suspect]
     Active Substance: AMOXICILLIN\CLAVULANATE POTASSIUM
     Indication: GOUTY TOPHUS
     Route: 065

REACTIONS (3)
  - Neutrophil count increased [Unknown]
  - Concomitant disease aggravated [Unknown]
  - Acute generalised exanthematous pustulosis [Recovered/Resolved]
